FAERS Safety Report 18936878 (Version 1)
Quarter: 2021Q1

REPORT INFORMATION
  Report Type: Spontaneous
  Country: US (occurrence: US)
  Receive Date: 20210225
  Receipt Date: 20210225
  Transmission Date: 20210420
  Serious: No
  Sender: FDA-Public Use
  Company Number: US-Y-MABS THERAPEUTICS-2107317

PATIENT
  Sex: Female

DRUGS (2)
  1. LEUKINE [Concomitant]
     Active Substance: SARGRAMOSTIM
  2. DANYELZA [Suspect]
     Active Substance: NAXITAMAB-GQGK
     Indication: NEUROBLASTOMA
     Route: 042
     Dates: start: 20210217

REACTIONS (2)
  - Pain [Recovered/Resolved]
  - Tachycardia [Recovered/Resolved]

NARRATIVE: CASE EVENT DATE: 20210217
